FAERS Safety Report 10448773 (Version 2)
Quarter: 2014Q4

REPORT INFORMATION
  Report Type: Spontaneous
  Country: US (occurrence: US)
  Receive Date: 20140912
  Receipt Date: 20141023
  Transmission Date: 20150528
  Serious: Yes (Other)
  Sender: FDA-Public Use
  Company Number: US-PFIZER INC-2014250740

PATIENT
  Sex: Male

DRUGS (1)
  1. ADVIL [Suspect]
     Active Substance: IBUPROFEN
     Dosage: UNK, 1X/DAY
     Route: 048

REACTIONS (6)
  - Wrong technique in drug usage process [Unknown]
  - Choking [Unknown]
  - Pharyngeal oedema [Unknown]
  - Foreign body [Unknown]
  - Food interaction [Unknown]
  - Dysphagia [Unknown]

NARRATIVE: CASE EVENT DATE: 2014
